FAERS Safety Report 4579845-3 (Version None)
Quarter: 2005Q1

REPORT INFORMATION
  Report Type: 
  Country: None (occurrence: None)
  Receive Date: 20050210
  Receipt Date: 20050210
  Transmission Date: 20050727
  Serious: No
  Sender: FDA-Public Use
  Company Number: None

PATIENT
  Age: 68 Year
  Sex: Female
  Weight: 59 kg

DRUGS (9)
  1. ENBREL [Suspect]
     Indication: ARTHRALGIA
     Dosage: 2 INJECTIONS   EVERY WEEK   SUBCUTANEOUS
     Route: 058
     Dates: start: 20041101, end: 20050121
  2. ENBREL [Suspect]
     Indication: MUSCULOSKELETAL STIFFNESS
     Dosage: 2 INJECTIONS   EVERY WEEK   SUBCUTANEOUS
     Route: 058
     Dates: start: 20041101, end: 20050121
  3. ENBREL [Suspect]
     Indication: RHEUMATOID ARTHRITIS
     Dosage: 2 INJECTIONS   EVERY WEEK   SUBCUTANEOUS
     Route: 058
     Dates: start: 20041101, end: 20050121
  4. ENBREL [Suspect]
     Indication: SWELLING
     Dosage: 2 INJECTIONS   EVERY WEEK   SUBCUTANEOUS
     Route: 058
     Dates: start: 20041101, end: 20050121
  5. ENBREL [Suspect]
  6. METHOTREXATE [Concomitant]
  7. NEOTREXATE [Concomitant]
  8. RESTOFOS [Concomitant]
  9. HYDROQUIN [Concomitant]

REACTIONS (1)
  - THERAPY NON-RESPONDER [None]
